FAERS Safety Report 4515664-1 (Version None)
Quarter: 2004Q4

REPORT INFORMATION
  Report Type: 
  Country: None (occurrence: None)
  Receive Date: 20040930
  Receipt Date: 20040806
  Transmission Date: 20050328
  Serious: No
  Sender: FDA-Public Use
  Company Number: USA-2004-0016339

PATIENT
  Sex: Male

DRUGS (2)
  1. SPECTRACEF [Suspect]
     Indication: IMPAIRED HEALING
     Dosage: 200 MG, ORAL
     Route: 048
  2. SPECTRACEF [Suspect]
     Indication: LOCALISED INFECTION
     Dosage: 200 MG, ORAL
     Route: 048

REACTIONS (2)
  - FEELING COLD [None]
  - TREMOR [None]
